FAERS Safety Report 25545074 (Version 3)
Quarter: 2025Q3

REPORT INFORMATION
  Report Type: Spontaneous
  Country: US (occurrence: US)
  Receive Date: 20250711
  Receipt Date: 20250903
  Transmission Date: 20251020
  Serious: Yes (Death, Life-Threatening, Hospitalization)
  Sender: PFIZER
  Company Number: US-PFIZER INC-202500139421

PATIENT
  Age: 65 Year
  Sex: Male
  Weight: 105.3 kg

DRUGS (10)
  1. SOMAVERT [Suspect]
     Active Substance: PEGVISOMANT
     Indication: Acromegaly
     Dosage: 10 MG, DAILY
     Route: 058
     Dates: start: 201106
  2. HYDROCHLOROTHIAZIDE [Concomitant]
     Active Substance: HYDROCHLOROTHIAZIDE
     Dosage: 0.5 MG, DAILY
  3. ROSUVASTATIN [Concomitant]
     Active Substance: ROSUVASTATIN
     Dosage: 5 MG, 1X/DAY
  4. WARFARIN [Concomitant]
     Active Substance: WARFARIN
     Dosage: 6.5 MG, DAILY
  5. LISINOPRIL [Concomitant]
     Active Substance: LISINOPRIL
     Dosage: 20 MG, DAILY
  6. LEVOTHYROXINE [Concomitant]
     Active Substance: LEVOTHYROXINE
     Dosage: 175 UG, DAILY
  7. TAMSULOSIN [Concomitant]
     Active Substance: TAMSULOSIN
     Dosage: 0.4 MG, DAILY
  8. RIFAMPIN [Concomitant]
     Active Substance: RIFAMPIN
     Route: 042
  9. CEFTAROLINE [Concomitant]
     Active Substance: CEFTAROLINE
     Route: 042
  10. TESTOSTERONE [Concomitant]
     Active Substance: TESTOSTERONE

REACTIONS (4)
  - Sepsis [Fatal]
  - Acute kidney injury [Fatal]
  - Embolic stroke [Fatal]
  - Septic embolus [Fatal]

NARRATIVE: CASE EVENT DATE: 20240703
